FAERS Safety Report 21698332 (Version 1)
Quarter: 2022Q4

REPORT INFORMATION
  Report Type: Spontaneous
  Country: CN (occurrence: CN)
  Receive Date: 20221208
  Receipt Date: 20221208
  Transmission Date: 20230113
  Serious: Yes (Life-Threatening, Other)
  Sender: FDA-Public Use
  Company Number: CN-009507513-2212CHN001030

PATIENT
  Age: 45 Year
  Sex: Male

DRUGS (5)
  1. IMIPENEM AND CILASTATIN [Suspect]
     Active Substance: CILASTATIN SODIUM\IMIPENEM
     Indication: Anti-infective therapy
     Dosage: 1 G IMIPENEM (+) CILASTATIN SODIUM, INTRAVENOUSLY DRIP EVERY 8 HOURS, EACH DOSE LASTED FOR 3 HOURS
     Route: 041
     Dates: start: 2021, end: 2021
  2. EPINEPHRINE [Concomitant]
     Active Substance: EPINEPHRINE
     Dosage: 0.01-0.05 MICRO-G/KG/MIN
     Dates: start: 2021
  3. NOREPINEPHRINE [Concomitant]
     Active Substance: NOREPINEPHRINE
     Dosage: 15-55 MICRO-G/MIN, INTRAVENOUSLY PUMPED
     Route: 042
     Dates: start: 2021
  4. OXYGEN [Concomitant]
     Active Substance: OXYGEN
     Dosage: HIGH-FLOW OXYGEN THERAPY
     Dates: start: 2021
  5. SODIUM CHLORIDE [Concomitant]
     Active Substance: SODIUM CHLORIDE
     Dosage: 200 MILLILITER
     Route: 041
     Dates: start: 2021

REACTIONS (1)
  - Epilepsy [Recovering/Resolving]

NARRATIVE: CASE EVENT DATE: 20210101
